FAERS Safety Report 22399969 (Version 1)
Quarter: 2023Q2

REPORT INFORMATION
  Report Type: Spontaneous
  Country: US (occurrence: US)
  Receive Date: 20230602
  Receipt Date: 20230602
  Transmission Date: 20230722
  Serious: Yes (Hospitalization, Other)
  Sender: FDA-Public Use
  Company Number: US-FreseniusKabi-FK202307752

PATIENT
  Age: 68 Year
  Sex: Female

DRUGS (1)
  1. BUPIVACAINE [Suspect]
     Active Substance: BUPIVACAINE
     Indication: Procedural pain
     Dosage: ONQ PUMP INFUSION AT 5 ML/HR

REACTIONS (1)
  - Hepatotoxicity [Recovering/Resolving]
